FAERS Safety Report 5137425-5 (Version None)
Quarter: 2006Q4

REPORT INFORMATION
  Report Type: 
  Country: None (occurrence: None)
  Receive Date: 20061030
  Receipt Date: 20051101
  Transmission Date: 20070319
  Serious: No
  Sender: FDA-Public Use
  Company Number: US-GLAXOSMITHKLINE-A0580510A

PATIENT
  Age: 65 Year
  Sex: Female

DRUGS (14)
  1. ADVAIR HFA [Suspect]
     Indication: ASTHMA
     Dosage: 1PUFF PER DAY
     Route: 055
  2. FEXOFENADINE [Concomitant]
  3. ALLEGRA [Concomitant]
  4. PREMARIN [Concomitant]
  5. QUININE SULFATE [Concomitant]
  6. NEXIUM [Concomitant]
  7. NORVASC [Concomitant]
  8. HYDROXYCHLOROQUINE SULFATE [Concomitant]
  9. HYDROCHLOROTHIAZIDE [Concomitant]
  10. FOSINOPRIL SODIUM [Concomitant]
  11. WARFARIN SODIUM [Concomitant]
  12. ASPIRIN [Concomitant]
  13. ENDOCET [Concomitant]
  14. NEURONTIN [Concomitant]

REACTIONS (1)
  - IMPAIRED HEALING [None]
